FAERS Safety Report 9571474 (Version 1)
Quarter: 2013Q4

REPORT INFORMATION
  Report Type: Spontaneous
  Country: AT (occurrence: AT)
  Receive Date: 20131001
  Receipt Date: 20131001
  Transmission Date: 20140711
  Serious: Yes (Other)
  Sender: FDA-Public Use
  Company Number: AT-JNJFOC-20130913075

PATIENT
  Age: 63 Year
  Sex: Female

DRUGS (4)
  1. REMICADE [Suspect]
     Indication: CROHN^S DISEASE
     Route: 042
     Dates: end: 201303
  2. REMICADE [Suspect]
     Indication: CROHN^S DISEASE
     Route: 042
  3. REMICADE [Suspect]
     Indication: CROHN^S DISEASE
     Route: 042
     Dates: start: 2010, end: 2011
  4. EBETREXAT [Suspect]
     Indication: CROHN^S DISEASE
     Route: 058
     Dates: start: 200908, end: 201303

REACTIONS (6)
  - Crohn^s disease [Unknown]
  - Gastrooesophageal reflux disease [Unknown]
  - Arthritis enteropathic [Recovering/Resolving]
  - Anal stenosis [Unknown]
  - Herpes virus infection [Unknown]
  - Drug ineffective [Unknown]
